FAERS Safety Report 8427787-5 (Version None)
Quarter: 2012Q2

REPORT INFORMATION
  Report Type: 
  Country: None (occurrence: None)
  Receive Date: 20120611
  Receipt Date: 20120601
  Transmission Date: 20120825
  Serious: Yes (Death)
  Sender: FDA-Public Use
  Company Number: NL-BAXTER-2012BAX002826

PATIENT
  Sex: Female

DRUGS (6)
  1. KIOVIG [Suspect]
     Indication: MULTIPLE SCLEROSIS
     Route: 065
     Dates: start: 20090716, end: 20090716
  2. KIOVIG [Suspect]
     Route: 065
     Dates: start: 20120308, end: 20120308
  3. KIOVIG [Suspect]
     Route: 065
     Dates: start: 20120126, end: 20120126
  4. KIOVIG [Suspect]
     Indication: MULTIPLE SCLEROSIS
     Route: 042
     Dates: start: 20090716, end: 20090716
  5. KIOVIG [Suspect]
     Route: 042
     Dates: start: 20120308, end: 20120308
  6. KIOVIG [Suspect]
     Route: 042
     Dates: start: 20120126, end: 20120126

REACTIONS (1)
  - CARDIAC ARREST [None]
